FAERS Safety Report 8069094-9 (Version None)
Quarter: 2012Q1

REPORT INFORMATION
  Report Type: 
  Country: None (occurrence: None)
  Receive Date: 20120125
  Receipt Date: 20120118
  Transmission Date: 20120608
  Serious: No
  Sender: FDA-Public Use
  Company Number: US-PFIZER INC-2012015713

PATIENT
  Sex: Female
  Weight: 64.853 kg

DRUGS (2)
  1. PRISTIQ [Suspect]
     Indication: DEPRESSION
     Dosage: UNK
     Route: 048
     Dates: start: 20111101, end: 20120111
  2. SYNTHROID [Concomitant]
     Indication: THYROID DISORDER
     Dosage: 0.075 MG, 1X/DAY
     Route: 048

REACTIONS (2)
  - PAIN [None]
  - MUSCLE TIGHTNESS [None]
